FAERS Safety Report 8776249 (Version 1)
Quarter: 2012Q4

REPORT INFORMATION
  Report Type: 
  Country: US (occurrence: US)
  Receive Date: 20120910
  Receipt Date: 20120910
  Transmission Date: 20130627
  Serious: No
  Sender: FDA-Public Use
  Company Number: US-PFIZER INC-2012220817

PATIENT
  Age: 29 Year
  Sex: Female
  Weight: 94.79 kg

DRUGS (2)
  1. LYRICA [Suspect]
     Dosage: UNK
     Dates: start: 200901, end: 2009
  2. CHANTIX [Suspect]
     Indication: SMOKING CESSATION THERAPY
     Dosage: UNK
     Dates: start: 200906

REACTIONS (2)
  - Weight increased [Unknown]
  - Abnormal dreams [Unknown]
